FAERS Safety Report 24623513 (Version 1)
Quarter: 2024Q4

REPORT INFORMATION
  Report Type: Spontaneous
  Country: CN (occurrence: CN)
  Receive Date: 20241115
  Receipt Date: 20241115
  Transmission Date: 20250114
  Serious: Yes (Other)
  Sender: ACCORD
  Company Number: CN-Accord-455522

PATIENT
  Age: 37 Year
  Sex: Female

DRUGS (14)
  1. LETROZOLE [Suspect]
     Active Substance: LETROZOLE
     Indication: Hormone receptor positive HER2 negative breast cancer
  2. ABEMACICLIB [Suspect]
     Active Substance: ABEMACICLIB
     Indication: Hormone receptor positive HER2 negative breast cancer
     Dosage: ALSO RECEIVED 150 MG FROM AN UNKNOWN DATE
     Dates: start: 202112
  3. DENOSUMAB [Concomitant]
     Active Substance: DENOSUMAB
     Indication: Prophylaxis
  4. GOSERELIN [Concomitant]
     Active Substance: GOSERELIN
     Indication: Therapeutic ovarian suppression
  5. ABEMACICLIB [Suspect]
     Active Substance: ABEMACICLIB
     Indication: Breast cancer metastatic
     Dosage: ALSO RECEIVED 150 MG
     Dates: start: 202112
  6. ABEMACICLIB [Suspect]
     Active Substance: ABEMACICLIB
     Indication: Metastases to bone
     Dosage: ALSO RECEIVED 150 MG
     Dates: start: 202112
  7. ABEMACICLIB [Suspect]
     Active Substance: ABEMACICLIB
     Indication: Metastases to liver
     Dosage: ALSO RECEIVED 150 MG
     Dates: start: 202112
  8. ABEMACICLIB [Suspect]
     Active Substance: ABEMACICLIB
     Indication: Metastases to lymph nodes
     Dosage: ALSO RECEIVED 150 MG
     Dates: start: 202112
  9. ABEMACICLIB [Suspect]
     Active Substance: ABEMACICLIB
     Indication: Lymphangiosis carcinomatosa
     Dosage: ALSO RECEIVED 150 MG
     Dates: start: 202112
  10. LETROZOLE [Suspect]
     Active Substance: LETROZOLE
     Indication: Breast cancer metastatic
  11. LETROZOLE [Suspect]
     Active Substance: LETROZOLE
     Indication: Metastases to bone
  12. LETROZOLE [Suspect]
     Active Substance: LETROZOLE
     Indication: Metastases to liver
  13. LETROZOLE [Suspect]
     Active Substance: LETROZOLE
     Indication: Lymphangiosis carcinomatosa
  14. LETROZOLE [Suspect]
     Active Substance: LETROZOLE
     Indication: Metastases to lymph nodes

REACTIONS (2)
  - Neutropenia [Unknown]
  - Diarrhoea [Recovering/Resolving]

NARRATIVE: CASE EVENT DATE: 20220201
